FAERS Safety Report 4442269-3 (Version None)
Quarter: 2004Q3

REPORT INFORMATION
  Report Type: 
  Country: None (occurrence: None)
  Receive Date: 20040903
  Receipt Date: 20040413
  Transmission Date: 20050211
  Serious: Yes (Other)
  Sender: FDA-Public Use
  Company Number: 2004UW07418

PATIENT
  Age: 50 Year
  Sex: Female
  Weight: 58.0604 kg

DRUGS (3)
  1. CRESTOR [Suspect]
     Indication: BLOOD CHOLESTEROL INCREASED
  2. CRESTOR [Suspect]
     Indication: BLOOD CHOLESTEROL INCREASED
     Dosage: RESUMED CRESTOR AFTER ONE WEEK WITHDRAWAL
  3. LEVOXYL [Concomitant]

REACTIONS (1)
  - PARAESTHESIA ORAL [None]
